FAERS Safety Report 23686070 (Version 1)
Quarter: 2024Q1

REPORT INFORMATION
  Report Type: Spontaneous
  Country: GB (occurrence: GB)
  Receive Date: 20240329
  Receipt Date: 20240329
  Transmission Date: 20240410
  Serious: Yes (Other)
  Sender: FDA-Public Use
  Company Number: GB-SUN PHARMACEUTICAL INDUSTRIES LTD-2024RR-439297

PATIENT

DRUGS (1)
  1. ATORVASTATIN [Suspect]
     Active Substance: ATORVASTATIN
     Indication: Adverse drug reaction
     Dosage: 80 MILLIGRAM, QD
     Route: 065
     Dates: start: 20230105, end: 20240117

REACTIONS (1)
  - Dupuytren^s contracture [Recovering/Resolving]

NARRATIVE: CASE EVENT DATE: 20240117
